FAERS Safety Report 7553652-1 (Version None)
Quarter: 2011Q2

REPORT INFORMATION
  Report Type: 
  Country: None (occurrence: None)
  Receive Date: 20110617
  Receipt Date: 20110228
  Transmission Date: 20111010
  Serious: No
  Sender: FDA-Public Use
  Company Number: US-MYLANLABS-2011S1004213

PATIENT
  Age: 54 Year
  Sex: Female
  Weight: 118.84 kg

DRUGS (2)
  1. OMEPRAZOLE [Suspect]
     Indication: GASTROOESOPHAGEAL REFLUX DISEASE
     Route: 048
     Dates: start: 20110222
  2. DESVENLAFAXINE [Concomitant]
     Dates: start: 20110101

REACTIONS (2)
  - PRURITUS GENERALISED [None]
  - REACTION TO DRUG EXCIPIENTS [None]
